FAERS Safety Report 18056455 (Version 1)
Quarter: 2020Q3

REPORT INFORMATION
  Report Type: Spontaneous
  Country: US (occurrence: US)
  Receive Date: 20200722
  Receipt Date: 20200722
  Transmission Date: 20201103
  Serious: Yes (Other)
  Sender: FDA-Public Use
  Company Number: US-PURDUE-USA-2020-0158309

PATIENT
  Sex: Female

DRUGS (1)
  1. OXYCODONE HYDROCHLORIDE (SIMILAR TO NDA 22?272) [Suspect]
     Active Substance: OXYCODONE HYDROCHLORIDE
     Indication: PAIN MANAGEMENT

REACTIONS (7)
  - Overdose [Unknown]
  - Depression [Unknown]
  - Depressed level of consciousness [Unknown]
  - Sleep disorder [Unknown]
  - Withdrawal syndrome [Unknown]
  - Disturbance in attention [Unknown]
  - Pancreatitis [Unknown]
